FAERS Safety Report 5542062-4 (Version None)
Quarter: 2007Q4

REPORT INFORMATION
  Report Type: 
  Country: None (occurrence: None)
  Receive Date: 20071210
  Receipt Date: 20070817
  Transmission Date: 20080405
  Serious: Yes (Hospitalization, Other)
  Sender: FDA-Public Use
  Company Number: US-ASTRAZENECA-2007UW12124

PATIENT
  Age: 11904 Day
  Sex: Female
  Weight: 55 kg

DRUGS (29)
  1. SEROQUEL [Suspect]
     Indication: BIPOLAR DISORDER
     Dosage: 100MG - 800 MG
     Route: 048
     Dates: start: 20051216
  2. ABILIFY [Concomitant]
     Dates: start: 20050104
  3. GEODON [Concomitant]
     Dates: start: 20060101
  4. HALDOL [Concomitant]
     Dates: start: 20070101
  5. RISPERDAL [Concomitant]
     Dosage: .5 MG- 2 MG
     Dates: start: 20040304, end: 20040602
  6. ZYPREXA [Concomitant]
     Dates: start: 20050329, end: 20050525
  7. ACETAMINOPHEN AND OXYCODONE HCL [Concomitant]
  8. LITHIUM CARBONATE [Concomitant]
  9. ACETAMINOPHEN AND HYDROCODONE BITARTRATE [Concomitant]
  10. RABEPRAZOLE SODIUM [Concomitant]
  11. LORAZEPAM [Concomitant]
  12. BUSPIRONE HCL [Concomitant]
  13. ZOLPIDEM TARTRATE [Concomitant]
  14. CLONAZEPAM [Concomitant]
  15. TOPIRAMATE [Concomitant]
  16. METHOCARBAMOL [Concomitant]
  17. HYDROCORTISONE [Concomitant]
  18. CLOTRIMAZOLE [Concomitant]
  19. CIPROFLOXACIN [Concomitant]
  20. PROMETHAZINE [Concomitant]
  21. AMOXICILLIN [Concomitant]
  22. GUAIFENESIN [Concomitant]
  23. CARBAMAZEPINE [Concomitant]
  24. FLUCONAZOLE [Concomitant]
  25. PHENAZOPYRIDINE HCL TAB [Concomitant]
  26. COTRIM [Concomitant]
  27. MIRTAZAPINE [Concomitant]
  28. METHYLPRED [Concomitant]
  29. HYDROXYZINE [Concomitant]

REACTIONS (4)
  - CHOLECYSTECTOMY [None]
  - DIABETIC COMPLICATION [None]
  - PANCREATITIS [None]
  - PANCREATITIS CHRONIC [None]
